FAERS Safety Report 7916240-0 (Version None)
Quarter: 2011Q4

REPORT INFORMATION
  Report Type: 
  Country: None (occurrence: None)
  Receive Date: 20111116
  Receipt Date: 20111104
  Transmission Date: 20120403
  Serious: No
  Sender: FDA-Public Use
  Company Number: US-BIOGENIDEC-2011BI042393

PATIENT
  Age: 59 Year
  Sex: Female

DRUGS (2)
  1. TYSABRI [Suspect]
     Indication: MULTIPLE SCLEROSIS
     Route: 042
     Dates: start: 20110804
  2. AMBIEN [Concomitant]
     Indication: INSOMNIA

REACTIONS (5)
  - MUSCULAR WEAKNESS [None]
  - SPEECH DISORDER [None]
  - MULTIPLE SCLEROSIS [None]
  - SLOW SPEECH [None]
  - FALL [None]
